FAERS Safety Report 9780087 (Version 2)
Quarter: 2014Q1

REPORT INFORMATION
  Report Type: Spontaneous
  Country: US (occurrence: US)
  Receive Date: 20131223
  Receipt Date: 20140123
  Transmission Date: 20141002
  Serious: Yes (Other)
  Sender: FDA-Public Use
  Company Number: US-PFIZER INC-2013361923

PATIENT
  Age: 51 Year
  Sex: Female
  Weight: 61.22 kg

DRUGS (2)
  1. XALATAN [Suspect]
     Indication: GLAUCOMA
     Dosage: UNK, 1X/DAY
     Route: 047
  2. SYNTHROID [Concomitant]
     Dosage: UNK

REACTIONS (5)
  - Craniocerebral injury [Unknown]
  - Hemiplegia [Unknown]
  - Uterine disorder [Unknown]
  - Migraine [Unknown]
  - Hypoaesthesia [Unknown]
